FAERS Safety Report 10283476 (Version 1)
Quarter: 2014Q3

REPORT INFORMATION
  Report Type: Spontaneous
  Country: US (occurrence: US)
  Receive Date: 20140708
  Receipt Date: 20140708
  Transmission Date: 20150326
  Serious: No
  Sender: FDA-Public Use
  Company Number: US-ENDO PHARMACEUTICALS INC.-ALLO20130027

PATIENT
  Sex: Male
  Weight: 72.64 kg

DRUGS (2)
  1. ALLOPURINOL TABLETS 100MG [Suspect]
     Active Substance: ALLOPURINOL
     Indication: GOUT
     Route: 048
  2. ALLOPURINOL TABLETS 100MG [Suspect]
     Active Substance: ALLOPURINOL
     Route: 048
     Dates: start: 2010

REACTIONS (2)
  - Nightmare [Not Recovered/Not Resolved]
  - Somnambulism [Not Recovered/Not Resolved]
